FAERS Safety Report 9791941 (Version 1)
Quarter: 2014Q1

REPORT INFORMATION
  Report Type: Spontaneous
  Country: US (occurrence: US)
  Receive Date: 20140102
  Receipt Date: 20140102
  Transmission Date: 20141002
  Serious: No
  Sender: FDA-Public Use
  Company Number: US-PFIZER INC-2013373816

PATIENT
  Age: 53 Year
  Sex: Female
  Weight: 87.98 kg

DRUGS (5)
  1. SERTRALINE HCL [Suspect]
     Indication: DEPRESSION
     Dosage: 100 MG, DAILY
     Dates: start: 2012, end: 2012
  2. SERTRALINE HCL [Suspect]
     Dosage: 50 MG, DAILY
     Dates: start: 2012, end: 2012
  3. SERTRALINE HCL [Suspect]
     Dosage: UNK
     Dates: start: 2012, end: 2012
  4. DAXID [Suspect]
     Indication: DEPRESSION
     Dosage: 50 MG, DAILY
     Dates: start: 201312
  5. BUPROPION HYDROCHLORIDE [Concomitant]
     Dosage: 100 MG, DAILY

REACTIONS (3)
  - Drug intolerance [Unknown]
  - Head discomfort [Unknown]
  - Vomiting [Unknown]
